FAERS Safety Report 8190163-7 (Version None)
Quarter: 2012Q1

REPORT INFORMATION
  Report Type: 
  Country: None (occurrence: None)
  Receive Date: 20120305
  Receipt Date: 20120221
  Transmission Date: 20120608
  Serious: Yes (Hospitalization, Other)
  Sender: FDA-Public Use
  Company Number: ACO_29481_2012

PATIENT
  Age: 59 Year
  Sex: Male
  Weight: 73 kg

DRUGS (8)
  1. LEVOTHYROXINE SODIUM [Concomitant]
  2. AMPYRA [Suspect]
     Indication: MULTIPLE SCLEROSIS
     Dates: end: 20120101
  3. REBIF [Concomitant]
  4. CYMBALTA [Concomitant]
  5. BACLOFEN [Concomitant]
  6. TIZANIDINE HCL [Concomitant]
  7. PROVIGIL [Concomitant]
  8. FLOMAX	/00889901/ (MORNIFLUMATE) [Concomitant]

REACTIONS (2)
  - CONVULSION [None]
  - CONJUNCTIVITIS INFECTIVE [None]
